FAERS Safety Report 14654132 (Version 1)
Quarter: 2018Q1

REPORT INFORMATION
  Report Type: Spontaneous
  Country: US (occurrence: US)
  Receive Date: 20180319
  Receipt Date: 20180319
  Transmission Date: 20180509
  Serious: Yes (Other)
  Sender: FDA-Public Use
  Company Number: US-BIOGEN-2008BI028354

PATIENT
  Sex: Female

DRUGS (2)
  1. AMANTADINE. [Concomitant]
     Active Substance: AMANTADINE HYDROCHLORIDE
     Indication: FATIGUE
     Route: 048
  2. AVONEX [Suspect]
     Active Substance: INTERFERON BETA-1A
     Indication: MULTIPLE SCLEROSIS
     Route: 030
     Dates: start: 20080402

REACTIONS (3)
  - Hemiparesis [Not Recovered/Not Resolved]
  - Balance disorder [Not Recovered/Not Resolved]
  - Hemiplegia [Not Recovered/Not Resolved]
